FAERS Safety Report 16053815 (Version 1)
Quarter: 2019Q1

REPORT INFORMATION
  Report Type: Report from Study
  Country: US (occurrence: US)
  Receive Date: 20190308
  Receipt Date: 20190308
  Transmission Date: 20190418
  Serious: Yes (Other)
  Sender: FDA-Public Use
  Company Number: US-JNJFOC-20190307388

PATIENT
  Age: 74 Year
  Sex: Female

DRUGS (9)
  1. CALCIUM CARBONATE W/COLECALCIFEROL [Concomitant]
     Active Substance: CALCIUM CARBONATE\CHOLECALCIFEROL
  2. ALBUTEROL. [Concomitant]
     Active Substance: ALBUTEROL
  3. LISINOPRIL. [Concomitant]
     Active Substance: LISINOPRIL
  4. POTASSIUM [Concomitant]
     Active Substance: POTASSIUM
  5. IMBRUVICA [Suspect]
     Active Substance: IBRUTINIB
     Indication: AGRANULOCYTOSIS
     Route: 048
     Dates: start: 20190207
  6. HYDROCHLOROTHIAZIDE. [Concomitant]
     Active Substance: HYDROCHLOROTHIAZIDE
  7. LEVOTHYROXINE. [Concomitant]
     Active Substance: LEVOTHYROXINE
  8. PRAVASTATIN. [Concomitant]
     Active Substance: PRAVASTATIN
  9. FLONASE [Concomitant]
     Active Substance: FLUTICASONE PROPIONATE

REACTIONS (2)
  - Dehydration [Unknown]
  - Blood pressure decreased [Unknown]

NARRATIVE: CASE EVENT DATE: 20190301
